FAERS Safety Report 15473807 (Version 2)
Quarter: 2019Q1

REPORT INFORMATION
  Report Type: Spontaneous
  Country: JP (occurrence: JP)
  Receive Date: 20181008
  Receipt Date: 20190314
  Transmission Date: 20190417
  Serious: Yes (Hospitalization)
  Sender: FDA-Public Use
  Company Number: JP-PFIZER INC-2018396404

PATIENT
  Age: 84 Year
  Sex: Male
  Weight: 54.7 kg

DRUGS (1)
  1. EFFEXOR [Suspect]
     Active Substance: VENLAFAXINE HYDROCHLORIDE
     Indication: PAIN
     Dosage: 37.5 MG, DAILY

REACTIONS (2)
  - Abdominal discomfort [Unknown]
  - Product use in unapproved indication [Unknown]
